FAERS Safety Report 9966635 (Version 1)
Quarter: 2014Q1

REPORT INFORMATION
  Report Type: Report from Study
  Country: US (occurrence: US)
  Receive Date: 20140305
  Receipt Date: 20140305
  Transmission Date: 20141002
  Serious: No
  Sender: FDA-Public Use
  Company Number: US-ABBVIE-13P-163-1122784-00

PATIENT
  Age: 41 Year
  Sex: Female
  Weight: 65.83 kg

DRUGS (4)
  1. HUMIRA [Suspect]
     Indication: RHEUMATOID ARTHRITIS
     Dates: end: 201303
  2. NORTRIPTYLINE [Concomitant]
     Indication: FIBROMYALGIA
  3. DOXEPIN [Concomitant]
     Indication: INSOMNIA
  4. XANAX [Concomitant]
     Indication: ANXIETY
     Dosage: AS NEEDED, USED OCCASIONALLY

REACTIONS (8)
  - Joint hyperextension [Not Recovered/Not Resolved]
  - Cartilage injury [Not Recovered/Not Resolved]
  - Joint effusion [Recovered/Resolved]
  - Arthralgia [Not Recovered/Not Resolved]
  - Arthralgia [Not Recovered/Not Resolved]
  - Bronchitis [Recovered/Resolved]
  - Arthralgia [Not Recovered/Not Resolved]
  - Injury [Recovered/Resolved]
